FAERS Safety Report 26012744 (Version 2)
Quarter: 2025Q4

REPORT INFORMATION
  Report Type: Spontaneous
  Country: EU (occurrence: EU)
  Receive Date: 20251107
  Receipt Date: 20251107
  Transmission Date: 20260117
  Serious: Yes (Hospitalization, Other)
  Sender: SANDOZ
  Company Number: EU-BRUNO-20250417

PATIENT
  Age: 60 Year
  Sex: Male

DRUGS (12)
  1. CANRENONE [Suspect]
     Active Substance: CANRENONE
     Indication: Condition aggravated
     Dosage: 0.5 DF, QD, OPTIMIZED GUIDED MEDICAL THERAPY (OGMT)
     Route: 065
  2. CANRENONE [Suspect]
     Active Substance: CANRENONE
     Indication: Cardiac failure
  3. DIGOXIN [Suspect]
     Active Substance: DIGOXIN
     Indication: Condition aggravated
     Dosage: 0.12 MG, QD,  OPTIMIZED GUIDED MEDICAL THERAPY (OGMT)
     Route: 065
  4. DIGOXIN [Suspect]
     Active Substance: DIGOXIN
     Indication: Cardiac failure
  5. FUROSEMIDE [Suspect]
     Active Substance: FUROSEMIDE
     Indication: Condition aggravated
     Dosage: 0.25 MG, OPTIMIZED GUIDED MEDICAL THERAPY (OGMT)
     Route: 065
  6. FUROSEMIDE [Suspect]
     Active Substance: FUROSEMIDE
     Indication: Cardiac failure
  7. METOPROLOL [Suspect]
     Active Substance: METOPROLOL
     Indication: Condition aggravated
     Dosage: 100 MG, OPTIMIZED GUIDED MEDICAL THERAPY (OGMT)
     Route: 065
  8. METOPROLOL [Suspect]
     Active Substance: METOPROLOL
     Indication: Cardiac failure
  9. RIVAROXABAN [Suspect]
     Active Substance: RIVAROXABAN
     Indication: Condition aggravated
     Dosage: 20 MG, QD, OPTIMIZED GUIDED MEDICAL THERAPY (OGMT)
     Route: 065
  10. RIVAROXABAN [Suspect]
     Active Substance: RIVAROXABAN
     Indication: Cardiac failure
  11. SACUBITRIL\VALSARTAN [Suspect]
     Active Substance: SACUBITRIL\VALSARTAN
     Indication: Condition aggravated
     Dosage: 1 DF,  OPTIMIZED GUIDED MEDICAL THERAPY (OGMT)
     Route: 065
  12. SACUBITRIL\VALSARTAN [Suspect]
     Active Substance: SACUBITRIL\VALSARTAN
     Indication: Cardiac failure

REACTIONS (4)
  - Acute pulmonary oedema [Recovered/Resolved]
  - Atrial fibrillation [Recovered/Resolved]
  - Dyspnoea [Recovered/Resolved]
  - Therapy non-responder [Unknown]

NARRATIVE: CASE EVENT DATE: 20220601
